FAERS Safety Report 9019053 (Version 1)
Quarter: 2013Q1

REPORT INFORMATION
  Report Type: Report from Study
  Country: BE (occurrence: BE)
  Receive Date: 20130118
  Receipt Date: 20130118
  Transmission Date: 20140127
  Serious: Yes (Hospitalization)
  Sender: FDA-Public Use
  Company Number: BE-BAYER-2012-072619

PATIENT
  Age: 76 Year
  Sex: Male
  Weight: 50.3 kg

DRUGS (9)
  1. REGORAFENIB [Suspect]
     Indication: COLORECTAL CANCER METASTATIC
     Dosage: 160 MG, QD 3WK ON/ 1WK OFF
     Route: 048
     Dates: start: 20120705, end: 20120719
  2. REGORAFENIB [Suspect]
     Indication: COLORECTAL CANCER METASTATIC
     Dosage: 160 MG, QD 3WK ON/ 1WK OFF
     Route: 048
     Dates: start: 20120806, end: 20120827
  3. AMLOR [Concomitant]
     Indication: CORONARY ARTERY BYPASS
     Dosage: 5 MG, QD
     Route: 048
     Dates: start: 2000
  4. ASAFLOW [Concomitant]
     Indication: CORONARY ARTERY BYPASS
     Dosage: 80 MG, QD
     Route: 048
     Dates: start: 2000
  5. DAFALGAN [Concomitant]
     Indication: ABDOMINAL PAIN
     Dosage: 500 MG, QD
     Route: 048
     Dates: start: 20120712
  6. FRAXIPARIN [HEPARIN-FRACTION, CALCIUM SALT] [Concomitant]
     Indication: THROMBOSIS PROPHYLAXIS
     Dosage: 0.4 ML
     Route: 058
     Dates: start: 20120719
  7. DUROGESIC [Concomitant]
     Indication: ABDOMINAL PAIN
     Dosage: 12 UG/ 3 DAYS
     Route: 003
     Dates: start: 20120731
  8. ULTRA K [Concomitant]
     Indication: HYPOKALAEMIA
     Dosage: 200 ML BID
     Route: 048
     Dates: start: 20120728
  9. STOMATOLOGICALS, MOUTH PREPARATIONS [Concomitant]
     Indication: DRY MOUTH
     Dosage: UNK
     Route: 048
     Dates: start: 20120719

REACTIONS (2)
  - General physical health deterioration [Recovered/Resolved]
  - Decreased appetite [Recovered/Resolved]
